FAERS Safety Report 26161663 (Version 1)
Quarter: 2025Q4

REPORT INFORMATION
  Report Type: Spontaneous
  Country: US (occurrence: US)
  Receive Date: 20251216
  Receipt Date: 20251216
  Transmission Date: 20260118
  Serious: No
  Sender: ALVOGEN
  Company Number: US-ALVOGEN-2025096445

PATIENT
  Sex: Male

DRUGS (3)
  1. FENTANYL [Suspect]
     Active Substance: FENTANYL
     Indication: Pain management
     Dosage: FOR 4 YEARS
     Route: 062
     Dates: start: 2021
  2. FENTANYL [Suspect]
     Active Substance: FENTANYL
     Indication: Pain management
     Dosage: NEW 1ST BOX
     Route: 062
  3. FENTANYL [Suspect]
     Active Substance: FENTANYL
     Indication: Pain management
     Dosage: EXPIRATION: MAY-2027?NEW 2ND BOX
     Route: 062

REACTIONS (4)
  - Device adhesion issue [Unknown]
  - Device malfunction [Unknown]
  - Lack of application site rotation [Unknown]
  - Drug ineffective [Unknown]
